FAERS Safety Report 7769123-3 (Version None)
Quarter: 2011Q3

REPORT INFORMATION
  Report Type: 
  Country: None (occurrence: None)
  Receive Date: 20110922
  Receipt Date: 20100825
  Transmission Date: 20111222
  Serious: No
  Sender: FDA-Public Use
  Company Number: US-ASTRAZENECA-2010SE40119

PATIENT

DRUGS (2)
  1. SEROQUEL [Suspect]
     Route: 048
  2. ANESTHETICS [Interacting]
     Route: 065

REACTIONS (2)
  - DRUG INTERACTION [None]
  - DELAYED RECOVERY FROM ANAESTHESIA [None]
